FAERS Safety Report 10057544 (Version 2)
Quarter: 2014Q2

REPORT INFORMATION
  Report Type: Report from Study
  Country: US (occurrence: US)
  Receive Date: 20140404
  Receipt Date: 20140414
  Transmission Date: 20141212
  Serious: Yes (Hospitalization, Other)
  Sender: FDA-Public Use
  Company Number: US-ROCHE-1377410

PATIENT
  Age: 89 Year
  Sex: Male

DRUGS (6)
  1. RANIBIZUMAB [Suspect]
     Indication: AGE-RELATED MACULAR DEGENERATION
     Route: 050
     Dates: start: 20130220
  2. RANIBIZUMAB [Suspect]
     Route: 050
     Dates: start: 20140205
  3. RANIBIZUMAB [Suspect]
     Route: 050
     Dates: start: 20140312
  4. MARCUMAR [Concomitant]
     Indication: ARRHYTHMIA
     Route: 065
  5. TRAVATAN [Concomitant]
     Indication: GLAUCOMA
     Dosage: 40 MCG/ML
     Route: 065
     Dates: start: 20050329
  6. ISOPTO MAX [Concomitant]

REACTIONS (4)
  - Eye penetration [Not Recovered/Not Resolved]
  - Retinal haemorrhage [Not Recovered/Not Resolved]
  - Visual acuity reduced [Not Recovered/Not Resolved]
  - Retinal cyst [Unknown]
